FAERS Safety Report 16184346 (Version 1)
Quarter: 2019Q2

REPORT INFORMATION
  Report Type: Spontaneous
  Country: DE (occurrence: DE)
  Receive Date: 20190411
  Receipt Date: 20190411
  Transmission Date: 20190711
  Serious: Yes (Hospitalization, Other)
  Sender: FDA-Public Use
  Company Number: DE-009507513-1904DEU004080

PATIENT
  Age: 51 Year
  Sex: Male
  Weight: 77 kg

DRUGS (11)
  1. NEUPRO [Suspect]
     Active Substance: ROTIGOTINE
     Dosage: DOSE: 5MG
     Dates: start: 201209, end: 2012
  2. DOXEPIN HYDROCHLORIDE. [Suspect]
     Active Substance: DOXEPIN HYDROCHLORIDE
     Indication: DEPRESSION
  3. MIRTAZAPINE. [Suspect]
     Active Substance: MIRTAZAPINE
     Indication: DEPRESSION
  4. VENLAFAXINE HYDROCHLORIDE. [Suspect]
     Active Substance: VENLAFAXINE HYDROCHLORIDE
     Indication: DEPRESSION
  5. DIAZEPAM. [Concomitant]
     Active Substance: DIAZEPAM
     Indication: RESTLESSNESS
     Dosage: DAILY DOSE: 8 MG MILLIGRAM(S) EVERY DAY
     Dates: start: 201212
  6. NEUPRO [Suspect]
     Active Substance: ROTIGOTINE
     Indication: RESTLESS LEGS SYNDROME
     Dosage: DOSE: 2MG
     Dates: start: 2012, end: 20130302
  7. LYRICA [Concomitant]
     Active Substance: PREGABALIN
  8. SERTRALINE HYDROCHLORIDE. [Suspect]
     Active Substance: SERTRALINE HYDROCHLORIDE
     Indication: DEPRESSION
  9. NEUPRO [Suspect]
     Active Substance: ROTIGOTINE
     Dosage: DOSE: 1MG
     Dates: start: 201202, end: 201209
  10. ZOPICLONE [Suspect]
     Active Substance: ZOPICLONE
     Indication: DEPRESSION
  11. VALDOXAN [Concomitant]
     Active Substance: AGOMELATINE
     Indication: SLEEP DISORDER
     Dosage: DOSE: 50 MG
     Dates: start: 201211, end: 201303

REACTIONS (23)
  - Syncope [Recovering/Resolving]
  - Muscle spasms [Unknown]
  - Syncope [Unknown]
  - Paraesthesia [Recovered/Resolved]
  - Dependence [Unknown]
  - Libido decreased [Unknown]
  - Disturbance in attention [Recovering/Resolving]
  - Fatigue [Unknown]
  - Sleep disorder [Unknown]
  - Stress at work [Unknown]
  - Depressive symptom [Unknown]
  - Sleep disorder [Recovered/Resolved]
  - Overdose [Unknown]
  - Logorrhoea [Recovering/Resolving]
  - Agitation [Recovered/Resolved]
  - Stress [Unknown]
  - Restlessness [Unknown]
  - Restlessness [Recovering/Resolving]
  - Weight increased [Unknown]
  - Depressive symptom [Recovering/Resolving]
  - Disturbance in attention [Recovering/Resolving]
  - Paraesthesia [Recovering/Resolving]
  - Restless legs syndrome [Unknown]

NARRATIVE: CASE EVENT DATE: 2011
